FAERS Safety Report 8034630-5 (Version None)
Quarter: 2012Q1

REPORT INFORMATION
  Report Type: 
  Country: None (occurrence: None)
  Receive Date: 20120110
  Receipt Date: 20120105
  Transmission Date: 20120608
  Serious: Yes (Other)
  Sender: FDA-Public Use
  Company Number: US-MERCK-1108USA02947

PATIENT
  Age: 67 Year
  Sex: Female

DRUGS (11)
  1. SYNTHROID [Concomitant]
     Indication: THYROID DISORDER
     Dosage: .75
     Route: 065
     Dates: start: 19820101
  2. OMEGA-3 MARINE TRIGLYCERIDES [Concomitant]
     Route: 065
     Dates: start: 19990101
  3. FOSAMAX [Suspect]
     Indication: OSTEOPENIA
     Route: 048
     Dates: start: 19990603, end: 20050601
  4. LISINOPRIL [Concomitant]
     Indication: HYPERTENSION
     Route: 065
     Dates: start: 19940101
  5. CHONDROITIN SULFATE SODIUM AND GLUCOSAMINE SULFATE [Concomitant]
     Indication: ARTHROPATHY
     Route: 065
     Dates: start: 19990101
  6. ELMIRON [Concomitant]
     Indication: CYSTITIS INTERSTITIAL
     Dosage: 3 PER DAY
     Route: 065
     Dates: start: 19870101
  7. CALCIUM CITRATE [Concomitant]
     Indication: OSTEOPENIA
     Route: 065
     Dates: start: 19990101
  8. VITAMINS (UNSPECIFIED) [Concomitant]
     Route: 065
     Dates: start: 19810101
  9. VITAMIN E [Concomitant]
     Route: 065
     Dates: start: 19990101
  10. VITAMIN B COMPLEX [Concomitant]
     Route: 065
     Dates: start: 19990101
  11. AMITRIPTYLINE HYDROCHLORIDE [Concomitant]
     Indication: CYSTITIS INTERSTITIAL
     Route: 065
     Dates: start: 19870101

REACTIONS (12)
  - ANXIETY [None]
  - CEREBROVASCULAR ACCIDENT [None]
  - GASTROOESOPHAGEAL REFLUX DISEASE [None]
  - PAIN IN EXTREMITY [None]
  - SQUAMOUS CELL CARCINOMA [None]
  - FEMUR FRACTURE [None]
  - DRUG INEFFECTIVE [None]
  - DRY EYE [None]
  - TOOTH DISORDER [None]
  - NEURALGIA [None]
  - IMPAIRED HEALING [None]
  - BLOOD CHOLESTEROL INCREASED [None]
